FAERS Safety Report 21291832 (Version 2)
Quarter: 2022Q3

REPORT INFORMATION
  Report Type: Spontaneous
  Country: DE (occurrence: DE)
  Receive Date: 20220903
  Receipt Date: 20220913
  Transmission Date: 20221027
  Serious: Yes (Life-Threatening, Hospitalization, Other)
  Sender: FDA-Public Use
  Company Number: DE-EMA-DD-20220203-pawar_p-105400

PATIENT
  Age: 75 Year
  Sex: Male

DRUGS (3)
  1. TRIAMCINOLONE ACETONIDE [Suspect]
     Active Substance: TRIAMCINOLONE ACETONIDE
     Indication: Back pain
     Dosage: UNK, INJECTION
     Route: 008
  2. SODIUM CHLORIDE [Suspect]
     Active Substance: SODIUM CHLORIDE
     Indication: Back pain
     Dosage: 20 ML NACL 0.9%
     Route: 008
  3. ROPIVACAINE [Suspect]
     Active Substance: ROPIVACAINE
     Indication: Back pain
     Dosage: 4 ML ROPIVACAINE 10 MG/ML
     Route: 008

REACTIONS (9)
  - Anaesthetic complication [Recovered/Resolved]
  - Spinal anaesthesia [Recovered/Resolved]
  - Incorrect route of product administration [Recovered/Resolved]
  - Somnolence [Recovered/Resolved]
  - Muscular weakness [Recovered/Resolved]
  - Circulatory collapse [Recovered/Resolved]
  - Cold sweat [Recovered/Resolved]
  - Paraparesis [Recovered/Resolved]
  - Epidural haemorrhage [Recovered/Resolved]
